FAERS Safety Report 9765394 (Version 1)
Quarter: 2013Q4

REPORT INFORMATION
  Report Type: Spontaneous
  Country: US (occurrence: US)
  Receive Date: 20131217
  Receipt Date: 20131217
  Transmission Date: 20140711
  Serious: No
  Sender: FDA-Public Use
  Company Number: US-BIOGENIDEC-2013BI110113

PATIENT
  Sex: Female

DRUGS (7)
  1. TECFIDERA [Suspect]
     Indication: MULTIPLE SCLEROSIS
     Route: 048
     Dates: start: 20131016
  2. TECFIDERA [Suspect]
     Indication: MULTIPLE SCLEROSIS
     Route: 048
  3. PROZAC [Concomitant]
  4. BUPROPION [Concomitant]
  5. ESTROGEN [Concomitant]
  6. AMANTADINE [Concomitant]
  7. TROSPIUM [Concomitant]

REACTIONS (2)
  - Gastroenteritis viral [Unknown]
  - Prescribed underdose [Unknown]
